FAERS Safety Report 4381714-9 (Version None)
Quarter: 2004Q2

REPORT INFORMATION
  Report Type: 
  Country: None (occurrence: None)
  Receive Date: 20040614
  Receipt Date: 20031022
  Transmission Date: 20050107
  Serious: Yes (Other)
  Sender: FDA-Public Use
  Company Number: 2003182869US

PATIENT
  Sex: Male

DRUGS (2)
  1. ZYVOX [Suspect]
  2. PROGRAF [Concomitant]

REACTIONS (1)
  - OPTIC NEUROPATHY [None]
